FAERS Safety Report 20182455 (Version 1)
Quarter: 2021Q4

REPORT INFORMATION
  Report Type: Spontaneous
  Country: US (occurrence: None)
  Receive Date: 20211214
  Receipt Date: 20211214
  Transmission Date: 20220303
  Serious: Yes (Hospitalization)
  Sender: FDA-Public Use
  Company Number: None

PATIENT
  Age: 43 Year
  Sex: Female
  Weight: 58.05 kg

DRUGS (1)
  1. CLINDAMYCIN [Suspect]
     Active Substance: CLINDAMYCIN
     Indication: Tooth infection
     Dosage: OTHER QUANTITY : 28 CAPSULE(S);?FREQUENCY : EVERY 6 HOURS;?
     Route: 048
     Dates: start: 20211111, end: 20211117

REACTIONS (4)
  - Rash [None]
  - Systemic inflammatory response syndrome [None]
  - Blood lactic acid increased [None]
  - Hepatic enzyme increased [None]

NARRATIVE: CASE EVENT DATE: 20211118
